FAERS Safety Report 5584632-3 (Version None)
Quarter: 2008Q1

REPORT INFORMATION
  Report Type: 
  Country: None (occurrence: None)
  Receive Date: 20080103
  Receipt Date: 20071219
  Transmission Date: 20080703
  Serious: Yes (Hospitalization)
  Sender: FDA-Public Use
  Company Number: S07-FRA-06486-01

PATIENT
  Age: 80 Year
  Sex: Male

DRUGS (10)
  1. CITALOPRAM HYDROBROMIDE [Suspect]
     Indication: DEPRESSION
     Dosage: 10 MG QD PO
     Route: 048
     Dates: start: 20061101, end: 20061123
  2. TRANDOLAPRIL [Suspect]
     Indication: HYPERTENSION
     Dates: end: 20061101
  3. GLUCOPHAGE [Concomitant]
  4. PERMIXON (SERENOA REPENS) [Concomitant]
  5. PLAVIX [Concomitant]
  6. FOSAVANCE (ALENDRONATE MONOSODIC/COLECALCIFEROL) [Concomitant]
  7. CACIT (CALCIUM) [Concomitant]
  8. VITAMIN B12 (CYANCOBALAMIN) [Concomitant]
  9. SPECIAFOLDINE (FOLIC ACID) [Concomitant]
  10. TRANDOLAPRIL [Suspect]
     Indication: HYPERTENSION
     Dates: start: 20061101, end: 20061122

REACTIONS (3)
  - FALL [None]
  - HYPONATRAEMIA [None]
  - HYPOTENSION [None]
